FAERS Safety Report 11222471 (Version 1)
Quarter: 2015Q2

REPORT INFORMATION
  Report Type: Spontaneous
  Country: FR (occurrence: FR)
  Receive Date: 20150626
  Receipt Date: 20150626
  Transmission Date: 20150821
  Serious: Yes (Other)
  Sender: FDA-Public Use
  Company Number: FR-009507513-1506FRA009675

PATIENT
  Age: 7 Year
  Sex: Male
  Weight: 19 kg

DRUGS (4)
  1. PROGLICEM [Suspect]
     Active Substance: DIAZOXIDE
     Indication: HYPOGLYCAEMIA
     Dosage: 200 MG, QD
     Route: 048
     Dates: start: 20150404, end: 20150407
  2. PROGLICEM [Suspect]
     Active Substance: DIAZOXIDE
     Indication: HYPOGLYCAEMIA
  3. PROGLICEM [Suspect]
     Active Substance: DIAZOXIDE
     Indication: HYPERPHAGIA
     Dosage: 100 MG, QD
     Route: 048
     Dates: start: 20150401
  4. PROGLICEM [Suspect]
     Active Substance: DIAZOXIDE
     Indication: METABOLIC DISORDER
     Dosage: 100 MG, QD
     Route: 048
     Dates: start: 201504

REACTIONS (1)
  - Musculoskeletal chest pain [Recovered/Resolved]

NARRATIVE: CASE EVENT DATE: 20150405
